FAERS Safety Report 19886138 (Version 1)
Quarter: 2021Q3

REPORT INFORMATION
  Report Type: Spontaneous
  Country: IT (occurrence: IT)
  Receive Date: 20210928
  Receipt Date: 20210928
  Transmission Date: 20211014
  Serious: Yes (Other)
  Sender: FDA-Public Use
  Company Number: NVSC2021IT218730

PATIENT
  Age: 57 Year
  Sex: Female

DRUGS (1)
  1. FINGOLIMOD. [Suspect]
     Active Substance: FINGOLIMOD
     Indication: MULTIPLE SCLEROSIS
     Dosage: 0.5 MG, QD TABLET
     Route: 048
     Dates: start: 20130601, end: 20210611

REACTIONS (1)
  - Ovarian cancer [Recovered/Resolved with Sequelae]

NARRATIVE: CASE EVENT DATE: 20210609
